FAERS Safety Report 5717231-0 (Version None)
Quarter: 2008Q2

REPORT INFORMATION
  Report Type: 
  Country: None (occurrence: None)
  Receive Date: 20080424
  Receipt Date: 20080418
  Transmission Date: 20081010
  Serious: Yes (Other)
  Sender: FDA-Public Use
  Company Number: JP-PFIZER INC-2008035075

PATIENT
  Sex: Female

DRUGS (1)
  1. NORVASC [Suspect]
     Dosage: DAILY DOSE:2.5MG

REACTIONS (1)
  - BLOOD PRESSURE DECREASED [None]
